FAERS Safety Report 7414692-6 (Version None)
Quarter: 2011Q2

REPORT INFORMATION
  Report Type: 
  Country: None (occurrence: None)
  Receive Date: 20110414
  Receipt Date: 20110203
  Transmission Date: 20111010
  Serious: No
  Sender: FDA-Public Use
  Company Number: US-B.I. PHARMACEUTICALS,INC./RIDGEFIELD-2011-BP-03448BP

PATIENT
  Sex: Male

DRUGS (10)
  1. JANUMET [Concomitant]
     Indication: DIABETES MELLITUS
  2. LISINOPRIL [Concomitant]
     Indication: HYPERTENSION
  3. AMLODIPINE [Concomitant]
     Indication: HYPERTENSION
  4. VYTORIN [Concomitant]
     Indication: BLOOD CHOLESTEROL INCREASED
  5. PRADAXA [Suspect]
     Indication: ATRIAL FIBRILLATION
     Dosage: 300 MG
     Route: 048
     Dates: start: 20110129
  6. LASIX [Concomitant]
     Indication: HYPERTENSION
  7. FOLIC ACID [Concomitant]
     Indication: SUPPLEMENTATION THERAPY
  8. GLIPIZIDE [Concomitant]
     Indication: DIABETES MELLITUS
  9. COZAAR [Concomitant]
     Indication: HYPERTENSION
  10. TOPROL-XL [Concomitant]
     Indication: HYPERTENSION

REACTIONS (5)
  - GAIT DISTURBANCE [None]
  - INFLAMMATION [None]
  - FEELING HOT [None]
  - PAIN IN EXTREMITY [None]
  - ERYTHEMA [None]
